FAERS Safety Report 4357707-4 (Version None)
Quarter: 2004Q2

REPORT INFORMATION
  Report Type: 
  Country: None (occurrence: None)
  Receive Date: 20040513
  Receipt Date: 20030617
  Transmission Date: 20050107
  Serious: Yes (Hospitalization)
  Sender: FDA-Public Use
  Company Number: US-GLAXOSMITHKLINE-A0413820A

PATIENT
  Age: 50 Year
  Sex: Female
  Weight: 120.5 kg

DRUGS (22)
  1. AVANDIA [Suspect]
     Route: 048
     Dates: start: 19990801, end: 20010101
  2. ALBUTEROL [Concomitant]
     Route: 055
  3. GLUCOPHAGE [Concomitant]
     Dosage: 850MG TWICE PER DAY
     Route: 048
  4. PRILOSEC [Concomitant]
     Route: 048
  5. ACCOLATE [Concomitant]
     Dosage: 20MG TWICE PER DAY
     Route: 048
  6. ZYRTEC [Concomitant]
     Route: 048
  7. SEREVENT [Concomitant]
     Dosage: 2PUFF TWICE PER DAY
     Route: 055
  8. ZOLOFT [Concomitant]
     Dosage: 50MG PER DAY
     Route: 048
  9. PREVACID [Concomitant]
     Dosage: 30MG TWICE PER DAY
     Route: 048
  10. GLUCOTROL [Concomitant]
     Dosage: 20MG PER DAY
     Route: 048
  11. MONOPRIL [Concomitant]
     Dosage: 10MG PER DAY
     Route: 048
  12. XENICAL [Concomitant]
     Dosage: 120MG THREE TIMES PER DAY
     Route: 048
  13. SINGULAIR [Concomitant]
     Dosage: 10MG PER DAY
  14. CLARITIN [Concomitant]
     Dosage: 10MG PER DAY
  15. PULMICORT [Concomitant]
     Dosage: 2PUFF TWICE PER DAY
  16. PRINIVIL [Concomitant]
  17. LOTENSIN [Concomitant]
  18. ACCUPRIL [Concomitant]
  19. ATROVENT [Concomitant]
     Dosage: 2PUFF TWICE PER DAY
  20. ASTELIN [Concomitant]
     Dosage: 2SPR TWICE PER DAY
  21. NAPRELAN [Concomitant]
  22. ULTRAM [Concomitant]
     Dosage: 50MG TWICE PER DAY

REACTIONS (7)
  - CARDIAC FAILURE CONGESTIVE [None]
  - FLUID OVERLOAD [None]
  - FLUID RETENTION [None]
  - HEART INJURY [None]
  - HEPATIC FAILURE [None]
  - HEPATOCELLULAR DAMAGE [None]
  - PULMONARY HYPERTENSION [None]
